FAERS Safety Report 7534534-8 (Version None)
Quarter: 2011Q2

REPORT INFORMATION
  Report Type: 
  Country: None (occurrence: None)
  Receive Date: 20110609
  Receipt Date: 20091022
  Transmission Date: 20111010
  Serious: Yes (Other)
  Sender: FDA-Public Use
  Company Number: PHHY2009JP46877

PATIENT
  Sex: Female

DRUGS (2)
  1. CANDESARTAN CILEXETIL [Concomitant]
     Dosage: 8 MG
     Dates: start: 20080201
  2. LETROZOLE [Suspect]
     Indication: BREAST CANCER
     Dosage: 2.5 MG,DAILY
     Dates: start: 20080201

REACTIONS (2)
  - FIBULA FRACTURE [None]
  - FALL [None]
